FAERS Safety Report 8661897 (Version 2)
Quarter: 2012Q4

REPORT INFORMATION
  Report Type: Report from Study
  Country: AU (occurrence: AU)
  Receive Date: 20120712
  Receipt Date: 20121019
  Transmission Date: 20130627
  Serious: Yes (Other)
  Sender: FDA-Public Use
  Company Number: AU-009507513-1207AUS000774

PATIENT
  Age: 64 Year
  Sex: Male

DRUGS (1)
  1. VICTRELIS 200 MG [Suspect]
     Dosage: 200 mg, UNK
     Route: 048
     Dates: start: 20120315, end: 20120515

REACTIONS (2)
  - Hepatic failure [Unknown]
  - Drug ineffective [Unknown]
